FAERS Safety Report 5315749-6 (Version None)
Quarter: 2007Q2

REPORT INFORMATION
  Report Type: 
  Country: None (occurrence: None)
  Receive Date: 20070503
  Receipt Date: 20070503
  Transmission Date: 20071010
  Serious: Yes (Other)
  Sender: FDA-Public Use
  Company Number: US-GLAXOSMITHKLINE-A0649678A

PATIENT
  Age: 45 Year
  Sex: Female

DRUGS (6)
  1. NICORETTE [Suspect]
     Indication: SMOKING CESSATION THERAPY
     Dosage: 2MG SEE DOSAGE TEXT
     Route: 002
     Dates: start: 20010901, end: 20070319
  2. GEODON [Concomitant]
  3. TEGRETOL [Concomitant]
  4. KLONOPIN [Concomitant]
  5. METROGEL [Concomitant]
  6. LEVOTHYROXINE SODIUM [Concomitant]

REACTIONS (6)
  - DEPENDENCE [None]
  - GINGIVAL BLEEDING [None]
  - GINGIVAL DISORDER [None]
  - PERIODONTITIS [None]
  - ROSACEA [None]
  - TOOTH DISORDER [None]
